FAERS Safety Report 8134437-4 (Version None)
Quarter: 2012Q1

REPORT INFORMATION
  Report Type: 
  Country: None (occurrence: None)
  Receive Date: 20120103
  Receipt Date: 20111108
  Transmission Date: 20120608
  Serious: No
  Sender: FDA-Public Use
  Company Number: AE-2011-003228

PATIENT
  Age: 43 Year
  Sex: Male
  Weight: 90.7194 kg

DRUGS (6)
  1. INCIVEK [Suspect]
     Dosage: 2250 MG ( ORAL750 MG, 1 IN 8 HR),
     Route: 048
     Dates: start: 20110911
  2. PEGASYS [Concomitant]
  3. RIBAVIRIN [Concomitant]
  4. CELEXA [Concomitant]
  5. ASPIRIN [Concomitant]
  6. A AND D OINTMENT [Concomitant]

REACTIONS (2)
  - CHAPPED LIPS [None]
  - DEHYDRATION [None]
